FAERS Safety Report 24035611 (Version 1)
Quarter: 2024Q3

REPORT INFORMATION
  Report Type: Spontaneous
  Country: GB (occurrence: GB)
  Receive Date: 20240701
  Receipt Date: 20240701
  Transmission Date: 20241017
  Serious: Yes (Disabling, Other)
  Sender: PFIZER
  Company Number: None

PATIENT
  Sex: Female

DRUGS (3)
  1. RIMEGEPANT [Suspect]
     Active Substance: RIMEGEPANT
     Indication: Migraine prophylaxis
     Dosage: 75MG WHEN REQUIRED - MAX 8 IN A MONTH
     Dates: start: 20240226
  2. ALBUTEROL [Concomitant]
     Active Substance: ALBUTEROL
     Dosage: UNK
  3. BECLOMETHASONE DIPROPIONATE [Concomitant]
     Active Substance: BECLOMETHASONE DIPROPIONATE
     Dosage: UNK

REACTIONS (6)
  - Muscular weakness [Recovering/Resolving]
  - Syncope [Recovered/Resolved]
  - Somnolence [Recovering/Resolving]
  - Musculoskeletal disorder [Unknown]
  - Loss of consciousness [Unknown]
  - Irritability [Unknown]
